FAERS Safety Report 13045838 (Version 5)
Quarter: 2017Q3

REPORT INFORMATION
  Report Type: Report from Study
  Country: FR (occurrence: FR)
  Receive Date: 20161220
  Receipt Date: 20170928
  Transmission Date: 20171127
  Serious: Yes (Other)
  Sender: FDA-Public Use
  Company Number: FR-CELGENEUS-FRA-2016121902

PATIENT
  Age: 73 Year
  Sex: Female
  Weight: 64 kg

DRUGS (14)
  1. CLAMOXYL [Concomitant]
     Active Substance: AMOXICILLIN\CLAVULANIC ACID
     Indication: PROPHYLAXIS
     Dosage: 1GM
     Route: 048
  2. LYSANXIA [Concomitant]
     Active Substance: PRAZEPAM
     Indication: PRODUCT USED FOR UNKNOWN INDICATION
     Route: 065
  3. CODEINE [Concomitant]
     Active Substance: CODEINE
     Indication: BACK PAIN
     Route: 065
  4. CARDENSIEL [Concomitant]
     Active Substance: BISOPROLOL FUMARATE
     Indication: PRODUCT USED FOR UNKNOWN INDICATION
     Route: 065
  5. CC-5013 [Suspect]
     Active Substance: LENALIDOMIDE
     Indication: PLASMA CELL MYELOMA
     Dosage: 10 MG
     Route: 048
     Dates: start: 20140725, end: 20160814
  6. ZELTREX [Concomitant]
     Active Substance: VALACYCLOVIR HYDROCHLORIDE
     Indication: PROPHYLAXIS
     Dosage: 500MG
     Route: 048
  7. MOPRALPRO [Concomitant]
     Active Substance: OMEPRAZOLE
     Indication: PROPHYLAXIS
     Dosage: 20MG
     Route: 048
  8. PREVISCAN [Concomitant]
     Active Substance: FLUINDIONE
     Indication: PROPHYLAXIS
     Dosage: 20MG
     Route: 048
  9. PARACETAMOL [Concomitant]
     Active Substance: ACETAMINOPHEN
     Indication: BACK PAIN
     Route: 065
  10. LEVOTHYROXINE. [Concomitant]
     Active Substance: LEVOTHYROXINE
     Indication: PRODUCT USED FOR UNKNOWN INDICATION
     Route: 065
  11. STILNOX [Concomitant]
     Active Substance: ZOLPIDEM TARTRATE
     Indication: PRODUCT USED FOR UNKNOWN INDICATION
     Route: 065
  12. FORLAX [Concomitant]
     Active Substance: POLYETHYLENE GLYCOL 4000
     Indication: PRODUCT USED FOR UNKNOWN INDICATION
     Route: 065
  13. BACTRIM [Concomitant]
     Active Substance: SULFAMETHOXAZOLE\TRIMETHOPRIM
     Indication: PROPHYLAXIS
     Dosage: 800MG
     Route: 048
  14. CC-5013 [Suspect]
     Active Substance: LENALIDOMIDE
     Dosage: 10 MG
     Route: 048
     Dates: start: 20161115

REACTIONS (1)
  - Adenocarcinoma of colon [Not Recovered/Not Resolved]

NARRATIVE: CASE EVENT DATE: 20161210
